FAERS Safety Report 15562887 (Version 2)
Quarter: 2018Q4

REPORT INFORMATION
  Report Type: Report from Study
  Country: AU (occurrence: AU)
  Receive Date: 20181029
  Receipt Date: 20181115
  Transmission Date: 20190205
  Serious: Yes (Other)
  Sender: FDA-Public Use
  Company Number: AU-BEH-2018096128

PATIENT
  Age: 69 Year
  Sex: Male
  Weight: 98 kg

DRUGS (2)
  1. BERINERT [Suspect]
     Active Substance: HUMAN C1-ESTERASE INHIBITOR
     Indication: HEREDITARY ANGIOEDEMA WITH C1 ESTERASE INHIBITOR DEFICIENCY
     Dosage: 1000 IU, BIW
     Route: 042
     Dates: start: 20181002
  2. BERINERT [Suspect]
     Active Substance: HUMAN C1-ESTERASE INHIBITOR
     Indication: PROPHYLAXIS

REACTIONS (3)
  - Headache [Recovered/Resolved with Sequelae]
  - Photophobia [Not Recovered/Not Resolved]
  - Hereditary angioedema [Recovered/Resolved]
